FAERS Safety Report 15927775 (Version 4)
Quarter: 2019Q2

REPORT INFORMATION
  Report Type: Spontaneous
  Country: PT (occurrence: PT)
  Receive Date: 20190205
  Receipt Date: 20190521
  Transmission Date: 20190711
  Serious: Yes (Hospitalization, Other)
  Sender: FDA-Public Use
  Company Number: PT-MYLANLABS-2019M1008039

PATIENT
  Age: 24 Year
  Sex: Male

DRUGS (1)
  1. RISPERIDONE. [Suspect]
     Active Substance: RISPERIDONE
     Indication: SCHIZOPHRENIA
     Dosage: 4 MILLIGRAM, QD
     Route: 065

REACTIONS (5)
  - Anxiety [Unknown]
  - Chest pain [Unknown]
  - Pulmonary infarction [Recovered/Resolved]
  - Stress [Unknown]
  - Pulmonary embolism [Recovered/Resolved]
